FAERS Safety Report 9177835 (Version 3)
Quarter: 2013Q3

REPORT INFORMATION
  Report Type: Report from Study
  Country: SE (occurrence: SE)
  Receive Date: 20130321
  Receipt Date: 20130913
  Transmission Date: 20140515
  Serious: Yes (Hospitalization)
  Sender: FDA-Public Use
  Company Number: PHHO2013SE000932

PATIENT
  Sex: 0

DRUGS (5)
  1. SOM230 [Suspect]
     Indication: PANCREATIC NEUROENDOCRINE TUMOUR
     Dosage: 60 MG, UNK
     Route: 030
     Dates: start: 20121116, end: 20121213
  2. AFINITOR [Suspect]
     Indication: PANCREATIC NEUROENDOCRINE TUMOUR
     Dosage: 10 MG, QD
     Route: 048
     Dates: start: 20121116, end: 20130102
  3. LOSARTAN [Concomitant]
     Indication: HYPERTENSION
     Dosage: 50 MG, UNK
  4. LEVAXIN [Concomitant]
     Indication: HYPOTHYROIDISM
     Dosage: 50 UG, UNK
  5. INDIVINA [Concomitant]
     Indication: OESTROGEN REPLACEMENT THERAPY
     Dosage: 1 MG, UNK

REACTIONS (2)
  - Hyperglycaemia [Not Recovered/Not Resolved]
  - Blood creatinine increased [Not Recovered/Not Resolved]
